FAERS Safety Report 6936055-X (Version None)
Quarter: 2010Q3

REPORT INFORMATION
  Report Type: 
  Country: None (occurrence: None)
  Receive Date: 20100819
  Receipt Date: 20100819
  Transmission Date: 20110219
  Serious: No
  Sender: FDA-Public Use
  Company Number: None

PATIENT
  Age: 41 Year
  Sex: Female
  Weight: 74.8435 kg

DRUGS (7)
  1. ALDARA [Suspect]
     Indication: BASAL CELL CARCINOMA
     Dosage: 250 MG PACKET 5X/WK 6WK TOP
     Route: 061
     Dates: start: 20100628, end: 20100702
  2. ALDARA [Suspect]
     Indication: BASAL CELL CARCINOMA
     Dosage: 250 MG PACKET 5X/WK 6WK TOP
     Route: 061
     Dates: start: 20100712, end: 20100813
  3. FAMOTIDINE [Concomitant]
  4. BISMUTH SUBSALICYLATE [Concomitant]
  5. COBALAMIN -B12- [Concomitant]
  6. ADVIL LIQUI-GELS [Concomitant]
  7. ACETAMINOPHEN [Concomitant]

REACTIONS (7)
  - APPLICATION SITE PRURITUS [None]
  - DIZZINESS [None]
  - ERYTHEMA [None]
  - HEADACHE [None]
  - SCAB [None]
  - SKIN HAEMORRHAGE [None]
  - SOFT TISSUE INFLAMMATION [None]
